FAERS Safety Report 9041251 (Version 1)
Quarter: 2013Q1

REPORT INFORMATION
  Report Type: Spontaneous
  Country: US (occurrence: None)
  Receive Date: 20130114
  Receipt Date: 20130114
  Transmission Date: 20140127
  Serious: Yes (Death)
  Sender: FDA-Public Use
  Company Number: 1212-760

PATIENT
  Sex: Female

DRUGS (1)
  1. EYLEA [Suspect]
     Dates: start: 20120208

REACTIONS (1)
  - Hepatic cancer [None]
